FAERS Safety Report 25393008 (Version 2)
Quarter: 2025Q2

REPORT INFORMATION
  Report Type: Spontaneous
  Country: AU (occurrence: AU)
  Receive Date: 20250604
  Receipt Date: 20250623
  Transmission Date: 20250717
  Serious: Yes (Hospitalization)
  Sender: BAXTER
  Company Number: AU-BAXTER-2025BAX016122

PATIENT

DRUGS (2)
  1. SODIUM CHLORIDE [Suspect]
     Active Substance: SODIUM CHLORIDE
     Route: 042
     Dates: start: 20250414, end: 20250421
  2. VANCOMYCIN HYDROCHLORIDE [Suspect]
     Active Substance: VANCOMYCIN HYDROCHLORIDE
     Route: 042
     Dates: start: 20250414, end: 20250421

REACTIONS (5)
  - Ataxia [Recovered/Resolved]
  - Headache [Unknown]
  - Drug level increased [Unknown]
  - Device infusion issue [Unknown]
  - Pyrexia [Unknown]
